FAERS Safety Report 4567508-X (Version None)
Quarter: 2005Q1

REPORT INFORMATION
  Report Type: 
  Country: None (occurrence: None)
  Receive Date: 20050127
  Receipt Date: 20050113
  Transmission Date: 20050727
  Serious: Yes (Other)
  Sender: FDA-Public Use
  Company Number: DEU-2003-0001214

PATIENT
  Age: 99 Year
  Sex: Female

DRUGS (2)
  1. PALLADONE [Suspect]
     Indication: PAIN
     Dosage: ORAL
     Route: 048
  2. BUPRENORPHINE HYDROCHLORIDE [Suspect]
     Indication: PAIN
     Dosage: TRANSDERMAL
     Route: 062

REACTIONS (3)
  - CIRCULATORY COLLAPSE [None]
  - COMA [None]
  - DRUG INTERACTION [None]
